FAERS Safety Report 6188059-5 (Version None)
Quarter: 2009Q2

REPORT INFORMATION
  Report Type: 
  Country: None (occurrence: None)
  Receive Date: 20090513
  Receipt Date: 20090505
  Transmission Date: 20091009
  Serious: Yes (Other)
  Sender: FDA-Public Use
  Company Number: PHEH2009US04462

PATIENT
  Sex: Female

DRUGS (9)
  1. RECLAST [Suspect]
     Dosage: UNK
     Dates: start: 20090501
  2. COUMADIN [Concomitant]
  3. LASIX [Concomitant]
  4. DIGOXIN [Concomitant]
  5. LEVOXYL [Concomitant]
  6. COREG [Concomitant]
  7. CRESTOR [Concomitant]
  8. COZAAR [Concomitant]
  9. ASPIRIN [Concomitant]

REACTIONS (5)
  - ABDOMINAL PAIN UPPER [None]
  - ANOREXIA [None]
  - INFLUENZA LIKE ILLNESS [None]
  - NAUSEA [None]
  - PSYCHOTIC DISORDER [None]
